FAERS Safety Report 19968879 (Version 3)
Quarter: 2022Q2

REPORT INFORMATION
  Report Type: Spontaneous
  Country: US (occurrence: US)
  Receive Date: 20211019
  Receipt Date: 20220408
  Transmission Date: 20220721
  Serious: No
  Sender: FDA-Public Use
  Company Number: US-PFIZER INC-2021895995

PATIENT
  Age: 67 Year
  Sex: Female

DRUGS (1)
  1. XELJANZ [Suspect]
     Active Substance: TOFACITINIB CITRATE
     Indication: Rheumatoid arthritis
     Dosage: 5 MG, 2X/DAY

REACTIONS (6)
  - Gait disturbance [Unknown]
  - Urinary tract infection [Unknown]
  - Joint swelling [Unknown]
  - Dry eye [Unknown]
  - Dry mouth [Unknown]
  - Arthropathy [Unknown]
